FAERS Safety Report 16458527 (Version 1)
Quarter: 2019Q2

REPORT INFORMATION
  Report Type: Spontaneous
  Country: US (occurrence: US)
  Receive Date: 20190620
  Receipt Date: 20190620
  Transmission Date: 20190711
  Serious: No
  Sender: FDA-Public Use
  Company Number: US-THERAPEUTICSMD-2019TMD00431

PATIENT
  Sex: Female
  Weight: 49.89 kg

DRUGS (2)
  1. IMVEXXY [Suspect]
     Active Substance: ESTRADIOL
     Dosage: 1 DOSAGE UNITS, 2X/WEEK BEFORE BEDTIME
     Route: 067
     Dates: start: 201903, end: 201903
  2. IMVEXXY [Suspect]
     Active Substance: ESTRADIOL
     Indication: VULVOVAGINAL DRYNESS
     Dosage: 1 DOSAGE UNITS, 1X/DAY BEFORE BEDTIME
     Route: 067
     Dates: start: 2019, end: 201903

REACTIONS (2)
  - Rash [Recovered/Resolved]
  - Off label use [Recovered/Resolved]

NARRATIVE: CASE EVENT DATE: 2019
